FAERS Safety Report 9520159 (Version 1)
Quarter: 2013Q3

REPORT INFORMATION
  Report Type: Spontaneous
  Country: US (occurrence: US)
  Receive Date: 20130912
  Receipt Date: 20130912
  Transmission Date: 20140515
  Serious: Yes (Hospitalization, Other)
  Sender: FDA-Public Use
  Company Number: US-ELI_LILLY_AND_COMPANY-US201309001299

PATIENT
  Age: 66 Year
  Sex: Female

DRUGS (2)
  1. EFFIENT [Suspect]
     Route: 048
  2. PLAVIX [Concomitant]

REACTIONS (4)
  - Coronary artery disease [Unknown]
  - Cerebral haemorrhage [Recovered/Resolved]
  - Eye disorder [Recovered/Resolved]
  - Troponin increased [Unknown]
